FAERS Safety Report 12463410 (Version 1)
Quarter: 2016Q2

REPORT INFORMATION
  Report Type: Spontaneous
  Country: US (occurrence: None)
  Receive Date: 20160613
  Receipt Date: 20160613
  Transmission Date: 20160815
  Serious: Yes (Other)
  Sender: FDA-Public Use
  Company Number: None

PATIENT
  Age: 47 Year
  Sex: Female
  Weight: 65.77 kg

DRUGS (1)
  1. GADOLINIUM GE [Suspect]
     Active Substance: GADOLINIUM
     Indication: SCAN WITH CONTRAST
     Dates: start: 20160526, end: 20160526

REACTIONS (3)
  - Muscular weakness [None]
  - Hemiparesis [None]
  - Hypoaesthesia [None]

NARRATIVE: CASE EVENT DATE: 20160528
